FAERS Safety Report 22381138 (Version 3)
Quarter: 2023Q4

REPORT INFORMATION
  Report Type: Spontaneous
  Country: IT (occurrence: IT)
  Receive Date: 20230530
  Receipt Date: 20231009
  Transmission Date: 20240109
  Serious: Yes (Other)
  Sender: FDA-Public Use
  Company Number: IT-SUN PHARMACEUTICAL INDUSTRIES LTD-2023RR-390780

PATIENT
  Age: 81 Year
  Sex: Male

DRUGS (5)
  1. LOPERAMIDE [Suspect]
     Active Substance: LOPERAMIDE
     Indication: Diarrhoea
     Dosage: UNK
     Route: 065
  2. ESCITALOPRAM [Suspect]
     Active Substance: ESCITALOPRAM OXALATE
     Indication: Central nervous system vasculitis
     Dosage: 10 MILLIGRAM
     Route: 065
  3. METOCLOPRAMIDE [Suspect]
     Active Substance: METOCLOPRAMIDE
     Indication: Diarrhoea
     Dosage: UNK
     Route: 065
  4. RIFAXIMIN [Suspect]
     Active Substance: RIFAXIMIN
     Indication: Diarrhoea
     Dosage: 800 MILLIEQUIVALENT
     Route: 065
  5. RIVASTIGMINE [Suspect]
     Active Substance: RIVASTIGMINE
     Indication: Central nervous system vasculitis
     Dosage: 9.5 MILLIGRAM
     Route: 065

REACTIONS (2)
  - Off label use [Unknown]
  - Drug ineffective [Unknown]
